FAERS Safety Report 14609415 (Version 1)
Quarter: 2018Q1

REPORT INFORMATION
  Report Type: Spontaneous
  Country: BR (occurrence: BR)
  Receive Date: 20180307
  Receipt Date: 20180307
  Transmission Date: 20180509
  Serious: Yes (Other)
  Sender: FDA-Public Use
  Company Number: BR-ASTRAZENECA-2018SE27025

PATIENT
  Age: 74 Year
  Sex: Female

DRUGS (1)
  1. KOMBIGLYZE XR [Suspect]
     Active Substance: METFORMIN HYDROCHLORIDE\SAXAGLIPTIN HYDROCHLORIDE
     Dosage: 5MG + 1000 MG ONCE DAILY, AT NIGHT
     Route: 048
     Dates: start: 2017

REACTIONS (5)
  - Diabetic nephropathy [Unknown]
  - Diabetes mellitus inadequate control [Unknown]
  - End stage renal disease [Unknown]
  - Anaemia [Unknown]
  - Nausea [Unknown]

NARRATIVE: CASE EVENT DATE: 201711
